FAERS Safety Report 19120991 (Version 1)
Quarter: 2021Q2

REPORT INFORMATION
  Report Type: Spontaneous
  Country: US (occurrence: US)
  Receive Date: 20210412
  Receipt Date: 20210412
  Transmission Date: 20210717
  Serious: Yes (Other)
  Sender: FDA-Public Use
  Company Number: None

PATIENT
  Age: 58 Year
  Sex: Male
  Weight: 112.5 kg

DRUGS (3)
  1. LOSARTAN. [Concomitant]
     Active Substance: LOSARTAN
  2. OXYCODONE 10 MG IMEDIATE RELEASE TABS [Suspect]
     Active Substance: OXYCODONE
     Indication: PAIN
     Dosage: ?          QUANTITY:1 TABLET(S);?
     Route: 048
     Dates: start: 20180612, end: 20210412
  3. TRAMODOL [Concomitant]
     Active Substance: TRAMADOL

REACTIONS (5)
  - Product odour abnormal [None]
  - Nausea [None]
  - Inadequate analgesia [None]
  - Product taste abnormal [None]
  - Illness [None]

NARRATIVE: CASE EVENT DATE: 20210410
